FAERS Safety Report 9689835 (Version 1)
Quarter: 2013Q4

REPORT INFORMATION
  Report Type: Spontaneous
  Country: US (occurrence: US)
  Receive Date: 20131115
  Receipt Date: 20131115
  Transmission Date: 20140711
  Serious: No
  Sender: FDA-Public Use
  Company Number: US-009507513-1311USA001809

PATIENT
  Sex: Female

DRUGS (5)
  1. SINGULAIR [Suspect]
     Indication: RHINITIS ALLERGIC
     Dosage: UNKNOWN
  2. SINGULAIR [Suspect]
     Dosage: UNKNOWN
  3. SIMVASTATIN TABLETS, USP [Concomitant]
     Dosage: UNKNOWN
  4. SYNTHROID [Concomitant]
  5. PREDNISOLONE [Concomitant]

REACTIONS (2)
  - Tachyphylaxis [Unknown]
  - Tachyphylaxis [Unknown]
